FAERS Safety Report 5506790-9 (Version None)
Quarter: 2007Q4

REPORT INFORMATION
  Report Type: 
  Country: None (occurrence: None)
  Receive Date: 20071105
  Receipt Date: 20071024
  Transmission Date: 20080405
  Serious: Yes (Other)
  Sender: FDA-Public Use
  Company Number: US-PFIZER INC-2007091101

PATIENT
  Sex: Female

DRUGS (3)
  1. CHANTIX [Suspect]
  2. ZOLOFT [Suspect]
  3. LORAZEPAM [Suspect]

REACTIONS (6)
  - ANXIETY [None]
  - DYSPHEMIA [None]
  - FEELING ABNORMAL [None]
  - IMPAIRED DRIVING ABILITY [None]
  - INTENTIONAL SELF-INJURY [None]
  - SPEECH DISORDER [None]
